FAERS Safety Report 16029922 (Version 1)
Quarter: 2019Q1

REPORT INFORMATION
  Report Type: Spontaneous
  Country: IT (occurrence: IT)
  Receive Date: 20190304
  Receipt Date: 20190304
  Transmission Date: 20190418
  Serious: Yes (Other)
  Sender: FDA-Public Use
  Company Number: PHHY2019IT006252

PATIENT
  Age: 42 Year
  Sex: Female

DRUGS (1)
  1. AMOXICILLIN. [Suspect]
     Active Substance: AMOXICILLIN
     Indication: DERMATITIS
     Dosage: 1000 MG, QD
     Route: 048
     Dates: start: 20180704, end: 20180704

REACTIONS (4)
  - Diarrhoea [Recovering/Resolving]
  - Anaphylactic shock [Recovering/Resolving]
  - Vomiting [Recovering/Resolving]
  - Gastrointestinal pain [Recovering/Resolving]

NARRATIVE: CASE EVENT DATE: 20180704
